FAERS Safety Report 17014887 (Version 1)
Quarter: 2019Q4

REPORT INFORMATION
  Report Type: Spontaneous
  Country: IT (occurrence: IT)
  Receive Date: 20191111
  Receipt Date: 20191111
  Transmission Date: 20200122
  Serious: Yes (Hospitalization, Other)
  Sender: FDA-Public Use
  Company Number: IT-SCIEGEN PHARMACEUTICALS INC-2019SCILIT00348

PATIENT
  Age: 40 Year
  Sex: Female

DRUGS (2)
  1. ARIPIPRAZOLE. [Suspect]
     Active Substance: ARIPIPRAZOLE
  2. VALPROIC ACID. [Interacting]
     Active Substance: VALPROIC ACID

REACTIONS (3)
  - Psychotic symptom [Unknown]
  - Therapeutic product cross-reactivity [None]
  - Drug level increased [Recovered/Resolved]
